FAERS Safety Report 6814191-6 (Version None)
Quarter: 2010Q2

REPORT INFORMATION
  Report Type: 
  Country: None (occurrence: None)
  Receive Date: 20100629
  Receipt Date: 20100614
  Transmission Date: 20101027
  Serious: Yes (Death)
  Sender: FDA-Public Use
  Company Number: AE 2010-112

PATIENT
  Age: 35 Year
  Sex: Male

DRUGS (3)
  1. FAZACLO ODT [Suspect]
     Dosage: 250 MG DAILY PO
     Route: 048
     Dates: start: 20080212, end: 20100331
  2. ABILIFY [Concomitant]
  3. DESMOPRESSIN ACETATE [Concomitant]

REACTIONS (1)
  - SUDDEN DEATH [None]
